FAERS Safety Report 9915039 (Version 3)
Quarter: 2014Q1

REPORT INFORMATION
  Report Type: Spontaneous
  Country: DE (occurrence: IT)
  Receive Date: 20140220
  Receipt Date: 20140313
  Transmission Date: 20141002
  Serious: Yes (Other)
  Sender: FDA-Public Use
  Company Number: IT-FRI-1000054395

PATIENT
  Age: 89 Year
  Sex: Female

DRUGS (5)
  1. NEBIVOLOL [Suspect]
     Dates: start: 20130101, end: 20131207
  2. MEMANTINE ORAL SOLUTION [Suspect]
     Indication: DEMENTIA ALZHEIMER^S TYPE
     Dates: start: 20131201, end: 20131207
  3. ZANEDIP [Suspect]
     Dates: start: 20130101, end: 20131207
  4. ARICEPT [Concomitant]
  5. COUMADIN [Concomitant]

REACTIONS (2)
  - Hypotension [Recovering/Resolving]
  - Syncope [Recovering/Resolving]
